FAERS Safety Report 14158150 (Version 1)
Quarter: 2017Q4

REPORT INFORMATION
  Report Type: Spontaneous
  Country: US (occurrence: US)
  Receive Date: 20171103
  Receipt Date: 20171103
  Transmission Date: 20180321
  Serious: Yes (Other)
  Sender: FDA-Public Use
  Company Number: US-ASTRAZENECA-2017SF11076

PATIENT
  Age: 55 Year
  Sex: Male
  Weight: 68 kg

DRUGS (5)
  1. NEXIUM [Suspect]
     Active Substance: ESOMEPRAZOLE MAGNESIUM
     Indication: GASTROOESOPHAGEAL REFLUX DISEASE
     Route: 048
     Dates: start: 2001, end: 2003
  2. LIPITOR [Concomitant]
     Active Substance: ATORVASTATIN CALCIUM
     Indication: BLOOD CHOLESTEROL ABNORMAL
     Dates: start: 201401, end: 201501
  3. NEXIUM [Suspect]
     Active Substance: ESOMEPRAZOLE MAGNESIUM
     Indication: GASTROOESOPHAGEAL REFLUX DISEASE
     Route: 048
     Dates: end: 201708
  4. TUMS [Concomitant]
     Active Substance: CALCIUM CARBONATE
  5. METFORMIN [Concomitant]
     Active Substance: METFORMIN HYDROCHLORIDE
     Indication: GLUCOSE TOLERANCE IMPAIRED
     Route: 048

REACTIONS (20)
  - Pain in extremity [Not Recovered/Not Resolved]
  - Muscle injury [Unknown]
  - Nausea [Not Recovered/Not Resolved]
  - Dyspepsia [Unknown]
  - Back disorder [Unknown]
  - Drug ineffective [Unknown]
  - Gastrointestinal disorder [Not Recovered/Not Resolved]
  - Sleep disorder [Unknown]
  - Nerve compression [Unknown]
  - Intentional product misuse [Not Recovered/Not Resolved]
  - Fall [Unknown]
  - Pain [Unknown]
  - Circumstance or information capable of leading to medication error [Unknown]
  - Haematemesis [Recovered/Resolved]
  - Arthritis [Not Recovered/Not Resolved]
  - Plantar fasciitis [Unknown]
  - Abdominal discomfort [Not Recovered/Not Resolved]
  - Eructation [Unknown]
  - Intervertebral disc protrusion [Unknown]
  - Pain in extremity [Unknown]
